FAERS Safety Report 10375017 (Version 1)
Quarter: 2014Q1

REPORT INFORMATION
  Report Type: Spontaneous
  Country: US (occurrence: None)
  Receive Date: 20140306
  Receipt Date: 20140306
  Transmission Date: 20141002
  Serious: Yes (Hospitalization)
  Sender: FDA-Public Use
  Company Number: 163-21880-12121780

PATIENT
  Age: 85 Year
  Sex: Male

DRUGS (6)
  1. REVLIMID [Suspect]
     Indication: MYELODYSPLASTIC SYNDROME
     Dosage: 5 MG, 21 IN 21 D, PO
     Route: 048
     Dates: start: 20121128
  2. DOXAZOSIN MESYLATE (DOXAZOSIN MESILATE) (UNKNOWN) [Concomitant]
  3. ISOSORBIDE DINITRATE (ISOSORBIDE DINITRATE) (UNKNOWN) [Concomitant]
  4. LOSARTAN POTASSIUM (LOSARTAN POTASSIUM) (UNKNOWN) [Concomitant]
  5. STOOL SOFTNER (DOCUSATE SODIUM) (UNKNOWN) [Concomitant]
  6. ASPIRIN (ACETYLSALICYLIC ACID) (TABLETS) [Concomitant]

REACTIONS (2)
  - Pneumonia [None]
  - Rash [None]
